FAERS Safety Report 4701343-4 (Version None)
Quarter: 2005Q2

REPORT INFORMATION
  Report Type: 
  Country: None (occurrence: None)
  Receive Date: 20050628
  Receipt Date: 20050419
  Transmission Date: 20051028
  Serious: Yes (Hospitalization)
  Sender: FDA-Public Use
  Company Number: IT-BRISTOL-MYERS SQUIBB COMPANY-12939872

PATIENT
  Age: 83 Year
  Sex: Female
  Weight: 68 kg

DRUGS (5)
  1. BLINDED: IRBESARTAN [Suspect]
     Indication: HYPERTENSION
     Dates: start: 20040722, end: 20050101
  2. BLINDED: PLACEBO [Suspect]
     Indication: HYPERTENSION
     Dates: start: 20040722, end: 20050101
  3. CLOPIDOGREL BISULFATE [Suspect]
     Indication: PROPHYLAXIS
     Dosage: INTERRUPTED D/T EVENT; RESTARTED ON 19-MAR-2005
     Dates: start: 20040622
  4. ASPIRIN [Suspect]
     Indication: PROPHYLAXIS
     Dosage: INTERRUPTED D/T EVENT; RESTARTED ON 19-MAR-2005
     Dates: start: 20040622
  5. FUROSEMIDE [Concomitant]

REACTIONS (7)
  - CONTUSION [None]
  - DIZZINESS [None]
  - FACIAL BONES FRACTURE [None]
  - FALL [None]
  - HYPOTENSION [None]
  - LACERATION [None]
  - WOUND [None]
